FAERS Safety Report 17710100 (Version 1)
Quarter: 2020Q2

REPORT INFORMATION
  Report Type: Report from Study
  Country: JP (occurrence: JP)
  Receive Date: 20200427
  Receipt Date: 20200427
  Transmission Date: 20200714
  Serious: Yes (Hospitalization)
  Sender: FDA-Public Use
  Company Number: JP-ROCHE-2576100

PATIENT
  Age: 85 Year
  Sex: Male
  Weight: 61.9 kg

DRUGS (8)
  1. ALIMTA [Suspect]
     Active Substance: PEMETREXED DISODIUM
     Indication: LUNG ADENOCARCINOMA
     Route: 041
     Dates: start: 20190529
  2. BAYASPIRIN [Concomitant]
     Active Substance: ASPIRIN
     Indication: ISCHAEMIC HEART DISEASE PROPHYLAXIS
     Dosage: THE BEGINNING OF DOSAGE DAY: BEFORE THE BEGINNING OF DOSAGE
     Route: 048
  3. ATEZOLIZUMAB. [Suspect]
     Active Substance: ATEZOLIZUMAB
     Indication: LUNG ADENOCARCINOMA
     Route: 041
     Dates: start: 20190529, end: 20191001
  4. NICORANDIL [Concomitant]
     Active Substance: NICORANDIL
     Indication: ISCHAEMIC HEART DISEASE PROPHYLAXIS
     Dosage: BEGINNING OF DOSAGE DAY: TRIAL PREINITIATION
     Route: 048
  5. FUROSEMIDE. [Concomitant]
     Active Substance: FUROSEMIDE
     Indication: CARDIAC FAILURE CHRONIC
     Dosage: THE BEGINNING OF DOSAGE DAY: BEFORE THE BEGINNING OF DOSAGE
     Route: 048
  6. CARBOPLATIN. [Suspect]
     Active Substance: CARBOPLATIN
     Indication: LUNG ADENOCARCINOMA
     Dosage: AUC5
     Route: 041
     Dates: start: 20190529
  7. PITAVASTATIN CA [Concomitant]
     Active Substance: PITAVASTATIN CALCIUM
     Indication: HYPERLIPIDAEMIA
     Dosage: BEGINNING OF DOSAGE DAY: TRIAL PREINITIATION
     Route: 048
  8. THYRADIN [Concomitant]
     Active Substance: LEVOTHYROXINE
     Indication: HYPOTHYROIDISM
     Route: 048
     Dates: start: 20190825

REACTIONS (1)
  - Diabetes mellitus [Not Recovered/Not Resolved]

NARRATIVE: CASE EVENT DATE: 20200319
